FAERS Safety Report 18255164 (Version 1)
Quarter: 2020Q3

REPORT INFORMATION
  Report Type: Spontaneous
  Country: US (occurrence: US)
  Receive Date: 20200911
  Receipt Date: 20200911
  Transmission Date: 20201103
  Serious: No
  Sender: FDA-Public Use
  Company Number: US-ASTRAZENECA-2020SF13739

PATIENT
  Sex: Female

DRUGS (4)
  1. TYLENOL [Concomitant]
     Active Substance: ACETAMINOPHEN
     Indication: HEADACHE
     Dosage: AS REQUIRED
     Route: 048
  2. SYMBICORT [Suspect]
     Active Substance: BUDESONIDE\FORMOTEROL FUMARATE DIHYDRATE
     Indication: ASTHMA
     Dosage: 80/4.5 MCG INHALER, 2 PUFFS TWICE A DAY
     Route: 055
     Dates: start: 20200806
  3. NEOMED SALINE WASH [Concomitant]
     Indication: RHINALGIA
     Route: 045
     Dates: start: 20200828
  4. NEOMED SALINE WASH [Concomitant]
     Indication: NASAL CONGESTION
     Route: 045
     Dates: start: 20200828

REACTIONS (6)
  - Nasal discomfort [Unknown]
  - Headache [Unknown]
  - Product use issue [Unknown]
  - Rhinalgia [Unknown]
  - Drug metabolising enzyme test abnormal [Unknown]
  - Drug hypersensitivity [Unknown]

NARRATIVE: CASE EVENT DATE: 20200806
